FAERS Safety Report 8430628-3 (Version None)
Quarter: 2012Q2

REPORT INFORMATION
  Report Type: 
  Country: None (occurrence: None)
  Receive Date: 20120612
  Receipt Date: 20120605
  Transmission Date: 20120825
  Serious: Yes (Disabling)
  Sender: FDA-Public Use
  Company Number: FR-PFIZER INC-2012032433

PATIENT
  Age: 61 Year
  Sex: Female
  Weight: 70 kg

DRUGS (3)
  1. PRAZEPAM [Concomitant]
     Dosage: 10 MG, DAILY
     Route: 048
     Dates: start: 20050101
  2. AROMASIN [Suspect]
     Indication: BREAST CANCER
     Dosage: 25 MG, 1X/DAY
     Route: 048
     Dates: start: 20110815, end: 20120326
  3. EFFEXOR XR [Concomitant]
     Dosage: 75 MG, DAILY
     Route: 048
     Dates: start: 20110103

REACTIONS (12)
  - ALOPECIA [None]
  - SKIN REACTION [None]
  - PAIN [None]
  - FOLLICULITIS [None]
  - RASH [None]
  - SKIN LESION [None]
  - PRURITUS [None]
  - HYPERHIDROSIS [None]
  - INFLAMMATION [None]
  - WEIGHT INCREASED [None]
  - ACNE [None]
  - ERYTHEMA [None]
